FAERS Safety Report 7463128-8 (Version None)
Quarter: 2011Q2

REPORT INFORMATION
  Report Type: 
  Country: None (occurrence: None)
  Receive Date: 20110506
  Receipt Date: 20110427
  Transmission Date: 20111010
  Serious: Yes (Other)
  Sender: FDA-Public Use
  Company Number: US-ROCHE-747547

PATIENT
  Sex: Male
  Weight: 74.8 kg

DRUGS (3)
  1. ACCUTANE [Suspect]
     Indication: ACNE
     Route: 065
     Dates: start: 19930901, end: 19941027
  2. TAGAMET [Concomitant]
  3. ADVIL LIQUI-GELS [Concomitant]

REACTIONS (6)
  - INFLAMMATORY BOWEL DISEASE [None]
  - INTESTINAL OBSTRUCTION [None]
  - IRRITABLE BOWEL SYNDROME [None]
  - DEPRESSION [None]
  - COLITIS ULCERATIVE [None]
  - GASTROINTESTINAL INJURY [None]
